FAERS Safety Report 7271938-5 (Version None)
Quarter: 2011Q1

REPORT INFORMATION
  Report Type: 
  Country: None (occurrence: None)
  Receive Date: 20110203
  Receipt Date: 20110124
  Transmission Date: 20110831
  Serious: Yes (Hospitalization)
  Sender: FDA-Public Use
  Company Number: DE-SANOFI-AVENTIS-2010SA075794

PATIENT
  Age: 83 Year
  Sex: Male

DRUGS (9)
  1. MULTAQ [Suspect]
     Route: 048
     Dates: start: 20100607, end: 20100611
  2. OMEPRAZOLE [Concomitant]
     Route: 065
  3. ACTRAPHANE HM [Concomitant]
     Indication: DIABETES MELLITUS
     Dosage: DOSAGE: ACCORDING TO BLOOD GLUCOSE VALUE
     Route: 058
  4. CARMEN [Concomitant]
     Indication: HYPOTENSION
     Route: 048
  5. METFORMIN HCL [Concomitant]
     Route: 065
  6. HYDROCHLOROTHIAZIDE/RAMIPRIL [Concomitant]
     Dosage: DOSAGE: 5/25 MG
     Route: 065
  7. AGGRENOX [Concomitant]
     Route: 065
  8. CLEXANE [Concomitant]
     Route: 058
  9. SIMVASTATIN [Concomitant]
     Route: 065

REACTIONS (7)
  - PETECHIAE [None]
  - EYE HAEMORRHAGE [None]
  - VOMITING [None]
  - NAUSEA [None]
  - DRUG INTOLERANCE [None]
  - INTRA-ABDOMINAL HAEMATOMA [None]
  - ERYTHEMA [None]
